FAERS Safety Report 10058331 (Version 1)
Quarter: 2014Q2

REPORT INFORMATION
  Report Type: Spontaneous
  Country: IT (occurrence: IT)
  Receive Date: 20140404
  Receipt Date: 20140404
  Transmission Date: 20141212
  Serious: Yes (Other)
  Sender: FDA-Public Use
  Company Number: IT-ROCHE-1372701

PATIENT
  Age: 34 Year
  Sex: Male

DRUGS (3)
  1. CLONAZEPAM [Suspect]
     Indication: EPILEPSY
     Route: 065
  2. PHENOBARBITAL [Concomitant]
  3. CARBAMAZEPINE [Concomitant]

REACTIONS (1)
  - Immune thrombocytopenic purpura [Unknown]
